FAERS Safety Report 20076343 (Version 4)
Quarter: 2021Q4

REPORT INFORMATION
  Report Type: Spontaneous
  Country: CZ (occurrence: CZ)
  Receive Date: 20211116
  Receipt Date: 20211227
  Transmission Date: 20220303
  Serious: Yes (Hospitalization, Other)
  Sender: FDA-Public Use
  Company Number: CZ-MYLANLABS-2021M1076748

PATIENT
  Sex: Male

DRUGS (16)
  1. IRINOTECAN [Suspect]
     Active Substance: IRINOTECAN
     Indication: Rectal adenocarcinoma
     Dosage: UNK UNK, CYCLICAL (UNK, FOLFIRI REGIMEN 1 CYCLE )
     Route: 065
     Dates: start: 202010, end: 202010
  2. IRINOTECAN [Suspect]
     Active Substance: IRINOTECAN
     Indication: Colorectal cancer metastatic
  3. CAPECITABINE [Suspect]
     Active Substance: CAPECITABINE
     Indication: Rectal adenocarcinoma
     Dosage: 3000 MILLIGRAM, ONCE A DAY (3000 MILLIGRAM, QD)
     Route: 065
     Dates: start: 20171218, end: 20180215
  4. CAPECITABINE [Suspect]
     Active Substance: CAPECITABINE
     Dosage: UNK
     Route: 065
  5. FLUOROURACIL [Suspect]
     Active Substance: FLUOROURACIL
     Indication: Colorectal cancer metastatic
     Dosage: UNK (AS PART OF FOLFOX TREAMENT)
     Route: 065
     Dates: start: 201810, end: 201906
  6. FLUOROURACIL [Suspect]
     Active Substance: FLUOROURACIL
     Indication: Rectal adenocarcinoma
     Dosage: UNK UNK, CYCLICAL (UNK, FOLFIRI REGIMEN 1 CYCLE/ AS PART OF FOLFIRI TREATMENT)
     Route: 065
     Dates: start: 202010, end: 202010
  7. FLUOROURACIL [Suspect]
     Active Substance: FLUOROURACIL
     Indication: Malignant neoplasm progression
  8. LEUCOVORIN [Suspect]
     Active Substance: LEUCOVORIN
     Indication: Rectal adenocarcinoma
     Dosage: UNK (AS PART OF FOLFIRI TREATMENT)
     Route: 065
     Dates: start: 202010, end: 202010
  9. LEUCOVORIN [Suspect]
     Active Substance: LEUCOVORIN
     Indication: Colorectal cancer metastatic
  10. LEUCOVORIN CALCIUM [Suspect]
     Active Substance: LEUCOVORIN CALCIUM
     Indication: Rectal adenocarcinoma
     Dosage: UNK (AS PART OF FOLFOX TREATMENT)
     Route: 065
     Dates: start: 201810, end: 201906
  11. LEUCOVORIN CALCIUM [Suspect]
     Active Substance: LEUCOVORIN CALCIUM
     Indication: Malignant neoplasm progression
  12. OXALIPLATIN [Suspect]
     Active Substance: OXALIPLATIN
     Indication: Rectal cancer
     Dosage: UNK (AS PART OF FOLFOX TREATMENT)
     Route: 065
     Dates: start: 201810, end: 201906
  13. OXALIPLATIN [Suspect]
     Active Substance: OXALIPLATIN
     Indication: Colorectal cancer metastatic
  14. ERBITUX [Concomitant]
     Active Substance: CETUXIMAB
     Indication: Rectal adenocarcinoma
     Dosage: UNK
     Route: 065
     Dates: start: 201911
  15. ERBITUX [Concomitant]
     Active Substance: CETUXIMAB
     Indication: Colorectal cancer metastatic
     Dosage: UNK
     Route: 065
     Dates: start: 201810, end: 201911
  16. LEUCOVORIN CALCIUM [Suspect]
     Active Substance: LEUCOVORIN CALCIUM
     Indication: Colorectal cancer metastatic
     Dosage: UNK (FOLFIRI REGIMEN 1 CYCLE)
     Route: 065
     Dates: start: 202010, end: 202010

REACTIONS (10)
  - Toxic cardiomyopathy [Recovering/Resolving]
  - Circulatory collapse [Recovered/Resolved]
  - Drug intolerance [Recovered/Resolved]
  - Vomiting [Recovered/Resolved]
  - Cardiac disorder [Recovering/Resolving]
  - Skin toxicity [Unknown]
  - Functional gastrointestinal disorder [Unknown]
  - Urogenital disorder [Unknown]
  - Nausea [Unknown]
  - Palpitations [Unknown]

NARRATIVE: CASE EVENT DATE: 20201001
